FAERS Safety Report 5303322-5 (Version None)
Quarter: 2007Q2

REPORT INFORMATION
  Report Type: 
  Country: None (occurrence: None)
  Receive Date: 20070420
  Receipt Date: 20070419
  Transmission Date: 20071010
  Serious: Yes (Life-Threatening)
  Sender: FDA-Public Use
  Company Number: FR-GLAXOSMITHKLINE-B0466960A

PATIENT
  Sex: Female

DRUGS (3)
  1. CLAMOXYL [Suspect]
     Route: 050
     Dates: start: 20060101
  2. ADVIL [Concomitant]
     Route: 065
     Dates: start: 20060101
  3. POLERY [Concomitant]
     Route: 065
     Dates: start: 20060101

REACTIONS (13)
  - APPLICATION SITE INDURATION [None]
  - CONJUNCTIVITIS [None]
  - ERYTHEMA [None]
  - GENERALISED ERYTHEMA [None]
  - HYPERSENSITIVITY [None]
  - LOSS OF CONSCIOUSNESS [None]
  - MALAISE [None]
  - NO THERAPEUTIC RESPONSE [None]
  - PAINFUL RESPIRATION [None]
  - PRURITUS [None]
  - RHINITIS [None]
  - SNEEZING [None]
  - URTICARIA GENERALISED [None]
